APPROVED DRUG PRODUCT: PACLITAXEL
Active Ingredient: PACLITAXEL
Strength: 100MG/VIAL
Dosage Form/Route: POWDER;INTRAVENOUS
Application: N216338 | Product #001 | TE Code: AB
Applicant: TEVA PHARMACEUTICALS INC
Approved: May 11, 2023 | RLD: Yes | RS: Yes | Type: RX